FAERS Safety Report 20078908 (Version 1)
Quarter: 2021Q4

REPORT INFORMATION
  Report Type: Spontaneous
  Country: US (occurrence: US)
  Receive Date: 20211117
  Receipt Date: 20211117
  Transmission Date: 20220303
  Serious: No
  Sender: FDA-Public Use
  Company Number: US-ALLERGAN-2050513US

PATIENT
  Sex: Female

DRUGS (2)
  1. COMBIGAN [Suspect]
     Active Substance: BRIMONIDINE TARTRATE\TIMOLOL MALEATE
     Indication: Intraocular pressure increased
     Dosage: 2 GTT, BID
     Route: 047
     Dates: start: 20201111, end: 20201229
  2. unspecified blood pressure pill [Concomitant]
     Indication: Hypertension
     Route: 048

REACTIONS (4)
  - Visual impairment [Recovered/Resolved]
  - Glare [Recovered/Resolved]
  - Vision blurred [Recovered/Resolved]
  - Product complaint [Unknown]

NARRATIVE: CASE EVENT DATE: 20201229
